FAERS Safety Report 7034761-2 (Version None)
Quarter: 2010Q4

REPORT INFORMATION
  Report Type: 
  Country: None (occurrence: None)
  Receive Date: 20101008
  Receipt Date: 20101001
  Transmission Date: 20110411
  Serious: Yes (Life-Threatening, Hospitalization, Other)
  Sender: FDA-Public Use
  Company Number: PHFR2010GB04403

PATIENT
  Sex: Male

DRUGS (1)
  1. CLOZARIL [Suspect]
     Indication: SCHIZOPHRENIA
     Dosage: UNK

REACTIONS (7)
  - BODY TEMPERATURE INCREASED [None]
  - COORDINATION ABNORMAL [None]
  - GASTROINTESTINAL TUBE INSERTION [None]
  - INFLUENZA LIKE ILLNESS [None]
  - MECHANICAL VENTILATION [None]
  - PNEUMONIA [None]
  - RESPIRATORY FAILURE [None]
